FAERS Safety Report 15423320 (Version 1)
Quarter: 2018Q3

REPORT INFORMATION
  Report Type: Spontaneous
  Country: US (occurrence: US)
  Receive Date: 20180918
  Receipt Date: 20180918
  Transmission Date: 20181010
  Serious: No
  Sender: FDA-Public Use
  Company Number: None

PATIENT
  Age: 82 Year
  Sex: Female

DRUGS (1)
  1. ESTRADIOL VAL INJ 20MG/ML [Suspect]
     Active Substance: ESTRADIOL VALERATE
     Dates: start: 2017

REACTIONS (1)
  - Intentional product misuse [None]

NARRATIVE: CASE EVENT DATE: 20180915
